FAERS Safety Report 8263182-X (Version None)
Quarter: 2012Q1

REPORT INFORMATION
  Report Type: 
  Country: None (occurrence: None)
  Receive Date: 20120327
  Receipt Date: 20110503
  Transmission Date: 20120608
  Serious: Yes (Hospitalization)
  Sender: FDA-Public Use
  Company Number: PHHY2011US34173

PATIENT
  Age: 64 Year
  Sex: Female
  Weight: 71.7 kg

DRUGS (3)
  1. IMODIUM [Concomitant]
  2. GLEEVEC [Suspect]
     Indication: CHRONIC MYELOID LEUKAEMIA
     Dosage: 400 MG, QD, ORAL
     Route: 048
     Dates: start: 20100201
  3. MAGNESIUM (MAGNESIUM) [Concomitant]

REACTIONS (18)
  - FLUID RETENTION [None]
  - WEIGHT INCREASED [None]
  - DEHYDRATION [None]
  - FATIGUE [None]
  - DIARRHOEA [None]
  - GLOMERULAR FILTRATION RATE DECREASED [None]
  - DRY SKIN [None]
  - BLOOD GLUCOSE INCREASED [None]
  - PERIORBITAL OEDEMA [None]
  - BLOOD CREATININE INCREASED [None]
  - RED BLOOD CELL COUNT DECREASED [None]
  - VOMITING [None]
  - ABDOMINAL PAIN [None]
  - HYPOKALAEMIA [None]
  - GASTROOESOPHAGEAL REFLUX DISEASE [None]
  - INFLUENZA [None]
  - NAUSEA [None]
  - MUSCLE SPASMS [None]
